FAERS Safety Report 4786237-0 (Version None)
Quarter: 2005Q3

REPORT INFORMATION
  Report Type: 
  Country: None (occurrence: None)
  Receive Date: 20050926
  Receipt Date: 20041118
  Transmission Date: 20060218
  Serious: Yes (Hospitalization)
  Sender: FDA-Public Use
  Company Number: 2004089335

PATIENT
  Sex: Male
  Weight: 68.0396 kg

DRUGS (2)
  1. NARDIL [Suspect]
     Indication: DEPRESSION
     Dosage: 90 MG (2 IN 1 D), ORAL
     Route: 048
  2. OLANZAPINE [Concomitant]

REACTIONS (1)
  - DRUG INEFFECTIVE [None]
